FAERS Safety Report 5506726-0 (Version None)
Quarter: 2007Q4

REPORT INFORMATION
  Report Type: 
  Country: None (occurrence: None)
  Receive Date: 20071105
  Receipt Date: 20071026
  Transmission Date: 20080405
  Serious: Yes (Hospitalization, Other)
  Sender: FDA-Public Use
  Company Number: US-ELI_LILLY_AND_COMPANY-US200710006877

PATIENT
  Age: 56 Year
  Sex: Female

DRUGS (3)
  1. HUMULIN 70/30 [Suspect]
  2. ENALAPRIL HCT [Concomitant]
  3. ASPIRIN [Concomitant]

REACTIONS (5)
  - DIABETIC NEUROPATHY [None]
  - HEMIPLEGIA [None]
  - HOSPITALISATION [None]
  - INTERVERTEBRAL DISC PROTRUSION [None]
  - MALAISE [None]
